FAERS Safety Report 5266226-2 (Version None)
Quarter: 2007Q1

REPORT INFORMATION
  Report Type: 
  Country: None (occurrence: None)
  Receive Date: 20070315
  Receipt Date: 20070306
  Transmission Date: 20070707
  Serious: Yes (Hospitalization)
  Sender: FDA-Public Use
  Company Number: JP-JPN-A200700857

PATIENT
  Age: 38 Year
  Sex: Female

DRUGS (2)
  1. MODACIN [Suspect]
     Indication: PERITONITIS
     Dosage: 1G SEE DOSAGE TEXT
     Route: 033
     Dates: start: 20070223, end: 20070301
  2. CEFOTIAM HYDROCHLORIDE [Concomitant]

REACTIONS (2)
  - CONVULSION [None]
  - HALLUCINATION [None]
